FAERS Safety Report 5305892-X (Version None)
Quarter: 2007Q2

REPORT INFORMATION
  Report Type: 
  Country: None (occurrence: None)
  Receive Date: 20070424
  Receipt Date: 20070420
  Transmission Date: 20071010
  Serious: Yes (Death)
  Sender: FDA-Public Use
  Company Number: US-GLAXOSMITHKLINE-A0644110A

PATIENT
  Age: 25 Year
  Sex: Male

DRUGS (4)
  1. LAMICTAL [Suspect]
     Indication: BIPOLAR II DISORDER
     Dosage: 200MG PER DAY
     Route: 048
     Dates: start: 20061101
  2. ASCORBIC ACID [Suspect]
     Route: 065
  3. CYMBALTA [Concomitant]
     Dates: start: 20070117
  4. AMBIEN [Concomitant]
     Dates: start: 20070125

REACTIONS (8)
  - AMNESIA [None]
  - ANXIETY [None]
  - DEATH [None]
  - DRUG INTERACTION [None]
  - FEELING ABNORMAL [None]
  - HEADACHE [None]
  - INSOMNIA [None]
  - MALAISE [None]
